FAERS Safety Report 9900116 (Version 2)
Quarter: 2014Q1

REPORT INFORMATION
  Report Type: Report from Study
  Country: SE (occurrence: SE)
  Receive Date: 20140214
  Receipt Date: 20140214
  Transmission Date: 20141002
  Serious: Yes (Hospitalization)
  Sender: FDA-Public Use
  Company Number: SE-TEVA-459515USA

PATIENT
  Age: 65 Year
  Sex: Male
  Weight: 83 kg

DRUGS (7)
  1. BENDAMUSTINE [Suspect]
     Indication: CHRONIC LYMPHOCYTIC LEUKAEMIA
     Route: 065
     Dates: start: 20131112
  2. BENDAMUSTINE [Suspect]
     Indication: CHRONIC LYMPHOCYTIC LEUKAEMIA
     Route: 065
     Dates: start: 20140108
  3. RITUXIMAB [Suspect]
     Indication: CHRONIC LYMPHOCYTIC LEUKAEMIA
     Dosage: FREQUENCY: 1 IN 1 MONTH
     Route: 042
     Dates: start: 20131111
  4. RITUXIMAB [Suspect]
     Indication: CHRONIC LYMPHOCYTIC LEUKAEMIA
     Dosage: FREQUENCY: 1 IN 1 MONTH
     Route: 042
     Dates: start: 20140108
  5. BLINDED STUDY MEDICATION (IBRUTINIB/PLACEBO) [Suspect]
     Indication: CHRONIC LYMPHOCYTIC LEUKAEMIA
     Dosage: 420 MILLIGRAM DAILY;
     Route: 048
     Dates: start: 20131112
  6. UIBRUTINIB [Suspect]
     Route: 048
     Dates: start: 20140203
  7. NIVESTIM [Concomitant]
     Indication: PROPHYLAXIS
     Dosage: DOSE:  30 MILJ
     Route: 058
     Dates: start: 20140116, end: 20140120

REACTIONS (2)
  - Febrile neutropenia [Recovered/Resolved]
  - Pharyngeal abscess [Recovering/Resolving]
